FAERS Safety Report 25033846 (Version 2)
Quarter: 2025Q1

REPORT INFORMATION
  Report Type: Spontaneous
  Country: DE (occurrence: DE)
  Receive Date: 20250303
  Receipt Date: 20250307
  Transmission Date: 20250408
  Serious: Yes (Congenital Anomaly, Other)
  Sender: ORGANON
  Company Number: DE-ORGANON-O2502DEU002378

PATIENT

DRUGS (1)
  1. LOSARTAN POTASSIUM [Suspect]
     Active Substance: LOSARTAN POTASSIUM
     Route: 064

REACTIONS (3)
  - Foetal disorder [Unknown]
  - Foetal renal impairment [Unknown]
  - Foetal exposure during pregnancy [Unknown]
